FAERS Safety Report 23675502 (Version 1)
Quarter: 2024Q1

REPORT INFORMATION
  Report Type: Spontaneous
  Country: CA (occurrence: CA)
  Receive Date: 20240327
  Receipt Date: 20240327
  Transmission Date: 20240409
  Serious: Yes (Other)
  Sender: FDA-Public Use
  Company Number: CA-CELLTRION INC.-2024CA004890

PATIENT

DRUGS (7)
  1. INFLECTRA [Suspect]
     Active Substance: INFLIXIMAB-DYYB
     Indication: Crohn^s disease
     Dosage: WEEKS 0, 2, 6 THEN EVERY 8 WEEKS
     Route: 042
     Dates: start: 20220323, end: 20220627
  2. INFLECTRA [Suspect]
     Active Substance: INFLIXIMAB-DYYB
     Dosage: REINDUCTION 10MG/KG WEEKS 0, 2, 6 THEN EVERY 4 WEEKS
     Route: 042
     Dates: start: 20220726
  3. INFLECTRA [Suspect]
     Active Substance: INFLIXIMAB-DYYB
     Dosage: REINDUCTION 10MG/KG WEEKS 0, 2, 6 THEN EVERY 4 WEEKS
     Route: 042
     Dates: start: 20240123
  4. INFLECTRA [Suspect]
     Active Substance: INFLIXIMAB-DYYB
     Dosage: REINDUCTION 10MG/KG WEEKS 0, 2, 6 THEN EVERY 4 WEEKS (760 MG, 4 WEEKS)
     Route: 042
     Dates: start: 20240220
  5. INFLECTRA [Suspect]
     Active Substance: INFLIXIMAB-DYYB
     Dosage: REINDUCTION 10MG/KG WEEKS 0, 2, 6 THEN EVERY 4 WEEKS (750 MG, 4 WEEKS)
     Route: 042
     Dates: start: 20240319
  6. MESALAMINE [Concomitant]
     Active Substance: MESALAMINE
     Dosage: 1 DF
  7. PREDNISONE [Concomitant]
     Active Substance: PREDNISONE
     Dosage: 1 DF

REACTIONS (1)
  - Inguinal hernia [Not Recovered/Not Resolved]
